FAERS Safety Report 5357196-7 (Version None)
Quarter: 2007Q2

REPORT INFORMATION
  Report Type: 
  Country: None (occurrence: None)
  Receive Date: 20070612
  Receipt Date: 20070606
  Transmission Date: 20071010
  Serious: Yes (Other)
  Sender: FDA-Public Use
  Company Number: 144-C5013-07060294

PATIENT
  Sex: Female

DRUGS (1)
  1. CC-5013   (LENALIDOMIDE) [Suspect]
     Indication: MYELODYSPLASTIC SYNDROME
     Dosage: ORAL
     Route: 048

REACTIONS (3)
  - HERPES VIRUS INFECTION [None]
  - NEUTROPENIA [None]
  - STOMATITIS [None]
